FAERS Safety Report 8211664-9 (Version None)
Quarter: 2012Q1

REPORT INFORMATION
  Report Type: 
  Country: None (occurrence: None)
  Receive Date: 20120315
  Receipt Date: 20120308
  Transmission Date: 20120608
  Serious: Yes (Other)
  Sender: FDA-Public Use
  Company Number: US-RB-036079-12

PATIENT
  Age: 87 Year
  Sex: Female

DRUGS (1)
  1. DELSYM [Suspect]
     Indication: PRODUCT USED FOR UNKNOWN INDICATION
     Route: 048
     Dates: start: 20120306

REACTIONS (4)
  - VISUAL IMPAIRMENT [None]
  - GLAUCOMA [None]
  - VISION BLURRED [None]
  - VISUAL ACUITY REDUCED [None]
